FAERS Safety Report 13474069 (Version 1)
Quarter: 2017Q2

REPORT INFORMATION
  Report Type: Spontaneous
  Country: ES (occurrence: ES)
  Receive Date: 20170424
  Receipt Date: 20170424
  Transmission Date: 20170830
  Serious: Yes (Life-Threatening, Hospitalization, Other)
  Sender: FDA-Public Use
  Company Number: ES-ALLERGAN-1715427US

PATIENT
  Age: 14 Year
  Sex: Male

DRUGS (1)
  1. LEVOTHYROXINE SODIUM UNK [Suspect]
     Active Substance: LEVOTHYROXINE SODIUM
     Indication: SUICIDE ATTEMPT
     Dosage: 75 DF, SINGLE
     Route: 048

REACTIONS (7)
  - Electrocardiogram J wave abnormal [Recovered/Resolved]
  - Dysarthria [Unknown]
  - Suicide attempt [Recovered/Resolved]
  - Lethargy [Unknown]
  - Gait disturbance [Unknown]
  - Atrial flutter [Recovered/Resolved]
  - Toxicity to various agents [Unknown]
